FAERS Safety Report 11614156 (Version 2)
Quarter: 2015Q4

REPORT INFORMATION
  Report Type: Spontaneous
  Country: US (occurrence: US)
  Receive Date: 20151008
  Receipt Date: 20151123
  Transmission Date: 20160304
  Serious: Yes (Hospitalization, Other)
  Sender: FDA-Public Use
  Company Number: US-ALLERGAN-1520572US

PATIENT
  Age: 71 Year
  Sex: Female
  Weight: 52.15 kg

DRUGS (1)
  1. RESTASIS [Suspect]
     Active Substance: CYCLOSPORINE
     Indication: DRY EYE
     Dosage: 2 GTT, Q12H
     Route: 047
     Dates: end: 20151006

REACTIONS (3)
  - Eye pain [Not Recovered/Not Resolved]
  - Back disorder [Recovered/Resolved]
  - Herpes ophthalmic [Recovering/Resolving]

NARRATIVE: CASE EVENT DATE: 2015
